FAERS Safety Report 14563833 (Version 2)
Quarter: 2018Q1

REPORT INFORMATION
  Report Type: Not Available
  Country: US (occurrence: US)
  Receive Date: 20180222
  Receipt Date: 20180301
  Transmission Date: 20180509
  Serious: Yes (Death)
  Sender: FDA-Public Use
  Company Number: US-NEUROCRINE BIOSCIENCES INC.-2018NBI00534

PATIENT
  Age: 52 Year
  Sex: Female

DRUGS (9)
  1. ARICEPT [Concomitant]
     Active Substance: DONEPEZIL HYDROCHLORIDE
  2. FOLIC ACID. [Concomitant]
     Active Substance: FOLIC ACID
  3. INGREZZA [Suspect]
     Active Substance: VALBENAZINE
     Indication: TARDIVE DYSKINESIA
  4. ATIVAN [Concomitant]
     Active Substance: LORAZEPAM
  5. ZYPREXA [Concomitant]
     Active Substance: OLANZAPINE
  6. INGREZZA [Suspect]
     Active Substance: VALBENAZINE
     Indication: DROOLING
     Route: 048
     Dates: start: 20171208, end: 201712
  7. INGREZZA [Suspect]
     Active Substance: VALBENAZINE
     Indication: TREMOR
  8. NAMENDA [Concomitant]
     Active Substance: MEMANTINE HYDROCHLORIDE
  9. NORCO [Concomitant]
     Active Substance: ACETAMINOPHEN\HYDROCODONE BITARTRATE

REACTIONS (1)
  - Dementia Alzheimer^s type [Fatal]

NARRATIVE: CASE EVENT DATE: 201712
